FAERS Safety Report 4587709-4 (Version None)
Quarter: 2005Q1

REPORT INFORMATION
  Report Type: 
  Country: None (occurrence: None)
  Receive Date: 20050218
  Receipt Date: 20041015
  Transmission Date: 20050727
  Serious: Yes (Hospitalization)
  Sender: FDA-Public Use
  Company Number: US-MERCK-0410USA02433

PATIENT
  Age: 65 Year
  Sex: Female

DRUGS (3)
  1. VIOXX [Suspect]
     Indication: ARTHRITIS
     Route: 048
     Dates: start: 20010101, end: 20040901
  2. OXYCODONE [Concomitant]
     Route: 065
  3. ZOLOFT [Concomitant]
     Route: 065

REACTIONS (5)
  - ARTHROPATHY [None]
  - BLOOD DISORDER [None]
  - IRRITABLE BOWEL SYNDROME [None]
  - MONARTHRITIS [None]
  - MUSCULOSKELETAL CHEST PAIN [None]
